FAERS Safety Report 9177893 (Version 1)
Quarter: 2013Q1

REPORT INFORMATION
  Report Type: Spontaneous
  Country: US (occurrence: None)
  Receive Date: 20130318
  Receipt Date: 20130318
  Transmission Date: 20140127
  Serious: Yes (Hospitalization)
  Sender: FDA-Public Use
  Company Number: 1628919

PATIENT
  Age: 65 Year
  Sex: Male

DRUGS (1)
  1. KETOROLAC TROMETAMOL [Suspect]
     Indication: BACK PAIN
     Route: 042

REACTIONS (1)
  - Inappropriate antidiuretic hormone secretion [None]
